FAERS Safety Report 9423689 (Version 1)
Quarter: 2013Q3

REPORT INFORMATION
  Report Type: Spontaneous
  Country: US (occurrence: US)
  Receive Date: 20130727
  Receipt Date: 20130727
  Transmission Date: 20140515
  Serious: Yes (Other)
  Sender: FDA-Public Use
  Company Number: US-MERCK-1307USA011532

PATIENT
  Age: 42 Year
  Sex: Female

DRUGS (5)
  1. JANUVIA [Suspect]
     Indication: DIABETES MELLITUS
     Dosage: 100 MG, QD
     Route: 048
  2. JANUVIA [Suspect]
     Dosage: 50 UNK, UNK
     Route: 048
     Dates: start: 2012
  3. JANUVIA [Suspect]
     Dosage: 25 MG, QD
     Route: 048
  4. METFORMIN [Concomitant]
     Dosage: 2000 MG, UNK
  5. METFORMIN [Concomitant]
     Dosage: 1000 MG, UNK

REACTIONS (3)
  - Alanine aminotransferase increased [Recovered/Resolved]
  - Aspartate aminotransferase increased [Recovered/Resolved]
  - Hepatic steatosis [Recovered/Resolved]
